FAERS Safety Report 6752052-1 (Version None)
Quarter: 2010Q2

REPORT INFORMATION
  Report Type: 
  Country: None (occurrence: None)
  Receive Date: 20100602
  Receipt Date: 20100519
  Transmission Date: 20101027
  Serious: Yes (Hospitalization)
  Sender: FDA-Public Use
  Company Number: US-ELI_LILLY_AND_COMPANY-US201005006221

PATIENT
  Sex: Male

DRUGS (13)
  1. FORTEO [Suspect]
     Indication: OSTEOPOROSIS
     Dosage: UNK, UNK
     Dates: start: 20091001
  2. COZAAR [Concomitant]
  3. FISH OIL [Concomitant]
  4. MUCINEX [Concomitant]
  5. MULTIVITAMIN [Concomitant]
  6. PROAIR HFA [Concomitant]
  7. SINGULAIR [Concomitant]
  8. VYTORIN [Concomitant]
  9. ASPIRIN [Concomitant]
  10. CALCIUM WITH VITAMIN D [Concomitant]
  11. MULTI-VITAMIN [Concomitant]
  12. PRILOSEC [Concomitant]
  13. POTASSIUM [Concomitant]

REACTIONS (2)
  - CARDIAC DISORDER [None]
  - DYSPNOEA [None]
